FAERS Safety Report 6839434-4 (Version None)
Quarter: 2010Q3

REPORT INFORMATION
  Report Type: 
  Country: None (occurrence: None)
  Receive Date: 20100714
  Receipt Date: 20090810
  Transmission Date: 20110219
  Serious: No
  Sender: FDA-Public Use
  Company Number: A0602179A

PATIENT
  Age: 46 Year
  Sex: Female

DRUGS (3)
  1. FLOVENT [Suspect]
     Indication: ACUTE PULMONARY HISTOPLASMOSIS
     Dosage: 2PUFF TWICE PER DAY
     Route: 055
     Dates: start: 20060401
  2. FORADIL [Concomitant]
  3. FLONASE [Concomitant]

REACTIONS (6)
  - ADVERSE EVENT [None]
  - CHEST DISCOMFORT [None]
  - DRUG EFFECT DECREASED [None]
  - ILL-DEFINED DISORDER [None]
  - PRODUCT QUALITY ISSUE [None]
  - RESPIRATORY DISORDER [None]
